FAERS Safety Report 7320839-2 (Version None)
Quarter: 2011Q1

REPORT INFORMATION
  Report Type: 
  Country: None (occurrence: None)
  Receive Date: 20110228
  Receipt Date: 20110214
  Transmission Date: 20110831
  Serious: Yes (Other)
  Sender: FDA-Public Use
  Company Number: FR-PFIZER INC-FR-WYE-H12980910

PATIENT
  Age: 38 Year
  Sex: Male
  Weight: 99.5 kg

DRUGS (10)
  1. MOROCTOCOG ALFA [Suspect]
     Dosage: 3000 IU, 1X/2 DAY
     Dates: start: 20091028
  2. ATRIPLA [Suspect]
     Indication: HIV INFECTION
     Dosage: UNK
     Route: 065
     Dates: start: 20090601
  3. PARACETAMOL [Suspect]
     Indication: PAIN
     Dosage: ON DEMAND
     Route: 065
  4. MOROCTOCOG ALFA [Suspect]
     Dosage: 3000 IU, 1X/2 DAY
     Dates: start: 20091028
  5. FELDENE [Suspect]
     Indication: ARTHRITIS
  6. REFACTO [Suspect]
     Indication: FACTOR VIII DEFICIENCY
     Dosage: 3000 IU EVERY OTHER DAY CONTINUALLY AS PROPHYLAXIS
     Route: 065
     Dates: start: 19991005, end: 20091026
  7. FELDENE [Suspect]
     Indication: PAIN
     Dosage: UNK
     Route: 065
     Dates: start: 20060515
  8. MOROCTOCOG ALFA [Suspect]
     Indication: FACTOR VIII DEFICIENCY
     Dosage: 3000 IU, 1X/2 DAY
     Route: 042
     Dates: start: 20091028
  9. MOROCTOCOG ALFA [Suspect]
     Dosage: 3000 IU, 1X/2 DAY
     Dates: start: 20091028
  10. OMEPRAZOLE [Suspect]
     Indication: PROPHYLAXIS
     Dosage: UNK
     Route: 065
     Dates: start: 20060515

REACTIONS (1)
  - FACTOR VIII INHIBITION [None]
